FAERS Safety Report 6595221-6 (Version None)
Quarter: 2010Q1

REPORT INFORMATION
  Report Type: 
  Country: None (occurrence: None)
  Receive Date: 20100212
  Receipt Date: 20100205
  Transmission Date: 20100710
  Serious: Yes (Death)
  Sender: FDA-Public Use
  Company Number: 20097831

PATIENT
  Sex: Female

DRUGS (1)
  1. LIORESAL [Suspect]
     Indication: MUSCLE SPASTICITY
     Dosage: 585.5 MCG, DAILY, INTRATHECAL
     Route: 037

REACTIONS (2)
  - FLUID INTAKE REDUCED [None]
  - HYPOPHAGIA [None]
